FAERS Safety Report 14929036 (Version 1)
Quarter: 2018Q2

REPORT INFORMATION
  Report Type: Spontaneous
  Country: FR (occurrence: FR)
  Receive Date: 20180523
  Receipt Date: 20180523
  Transmission Date: 20180711
  Serious: Yes (Hospitalization)
  Sender: FDA-Public Use
  Company Number: FR-MYLANLABS-2018M1033330

PATIENT
  Age: 18 Year
  Sex: Female

DRUGS (6)
  1. OMEPRAZOLE. [Suspect]
     Active Substance: OMEPRAZOLE
     Indication: GASTROOESOPHAGEAL REFLUX DISEASE
     Dosage: 1 DF, QD
     Route: 048
     Dates: start: 20180203, end: 20180206
  2. PHOLCODINE [Suspect]
     Active Substance: PHOLCODINE
     Indication: COUGH
     Dosage: 3 DF, QD
     Route: 048
     Dates: start: 20180203
  3. OFLOCET                            /00731801/ [Suspect]
     Active Substance: OFLOXACIN
     Indication: OTORRHOEA
     Dosage: 2 DF, QD (1 DOSE MATIN ET SOIR DANS LES OREILLES)
     Route: 001
     Dates: start: 20180203
  4. PIVALONE                           /03009501/ [Suspect]
     Active Substance: NEOMYCIN\POLYMYXIN B\TIXOCORTOL
     Indication: NASOPHARYNGITIS
     Dosage: UNK
     Route: 045
  5. ZOMIGORO [Concomitant]
     Active Substance: ZOLMITRIPTAN
     Indication: MIGRAINE
     Dosage: 1 DF, UNK
     Route: 048
  6. FLANID [Suspect]
     Active Substance: TIAPROFENIC ACID
     Indication: OTORRHOEA
     Dosage: 3 DF, QD
     Route: 048
     Dates: start: 20180203, end: 20180206

REACTIONS (2)
  - Rash maculo-papular [Recovering/Resolving]
  - Oedema peripheral [Recovering/Resolving]

NARRATIVE: CASE EVENT DATE: 20180206
